FAERS Safety Report 14803838 (Version 1)
Quarter: 2018Q2

REPORT INFORMATION
  Report Type: Spontaneous
  Country: AE (occurrence: AE)
  Receive Date: 20180425
  Receipt Date: 20180425
  Transmission Date: 20180711
  Serious: Yes (Hospitalization, Congenital Anomaly)
  Sender: FDA-Public Use
  Company Number: AE-BIOGEN-2018BI00561717

PATIENT
  Sex: Female

DRUGS (1)
  1. AVONEX [Suspect]
     Active Substance: INTERFERON BETA-1A
     Indication: MATERNAL EXPOSURE TIMING UNSPECIFIED
     Route: 064

REACTIONS (6)
  - Intestinal ischaemia [Unknown]
  - Low birth weight baby [Recovered/Resolved]
  - Foetal distress syndrome [Recovered/Resolved]
  - Foetal growth restriction [Recovered/Resolved]
  - Neonatal intestinal dilatation [Unknown]
  - Foetal exposure during pregnancy [Unknown]
